FAERS Safety Report 6618819 (Version 2)
Quarter: 2016Q4

REPORT INFORMATION
  Report Type: Spontaneous
  Country: US (occurrence: US)
  Receive Date: 20080418
  Receipt Date: 20161018
  Transmission Date: 20170207
  Serious: Yes (Life-Threatening, Other)
  Sender: FDA-Public Use
  Company Number: US-PFIZER INC-2008032795

PATIENT
  Age: 43 Year
  Sex: Female

DRUGS (1)
  1. PREDNISONE. [Suspect]
     Active Substance: PREDNISONE
     Indication: ASTHMA PROPHYLAXIS
     Dosage: 60 MG, UNK
     Route: 048

REACTIONS (3)
  - Cardiac failure [Recovered/Resolved]
  - Cardiac arrest [Recovered/Resolved]
  - Phaeochromocytoma crisis [Recovered/Resolved]
